FAERS Safety Report 17732559 (Version 2)
Quarter: 2022Q1

REPORT INFORMATION
  Report Type: Spontaneous
  Country: US (occurrence: US)
  Receive Date: 20200501
  Receipt Date: 20220106
  Transmission Date: 20220424
  Serious: No
  Sender: FDA-Public Use
  Company Number: US-NOVARTISTESTPH-NVSC2020US117279

PATIENT
  Sex: Female

DRUGS (1)
  1. MAYZENT [Suspect]
     Active Substance: SIPONIMOD
     Indication: Multiple sclerosis
     Dosage: 0.25 MG, ONCE4SDO
     Route: 048

REACTIONS (4)
  - Rash [Unknown]
  - Feeling abnormal [Unknown]
  - Mobility decreased [Unknown]
  - Oedema peripheral [Unknown]
